FAERS Safety Report 9514046 (Version 1)
Quarter: 2013Q3

REPORT INFORMATION
  Report Type: Spontaneous
  Country: PH (occurrence: PH)
  Receive Date: 20130910
  Receipt Date: 20130910
  Transmission Date: 20140515
  Serious: Yes (Death, Other)
  Sender: FDA-Public Use
  Company Number: PH-009507513-1309PHL002717

PATIENT
  Sex: Female

DRUGS (1)
  1. VYTORIN [Suspect]
     Dosage: 1 TABLET, ONCE A DAY
     Route: 048

REACTIONS (1)
  - Neoplasm malignant [Fatal]
